FAERS Safety Report 14154993 (Version 1)
Quarter: 2017Q4

REPORT INFORMATION
  Report Type: Report from Study
  Country: MX (occurrence: MX)
  Receive Date: 20171103
  Receipt Date: 20171103
  Transmission Date: 20180321
  Serious: Yes (Other)
  Sender: FDA-Public Use
  Company Number: MX-ROCHE-2016985

PATIENT
  Age: 42 Year
  Sex: Female

DRUGS (5)
  1. CHLORPHENAMINE [Concomitant]
     Active Substance: CHLORPHENIRAMINE MALEATE
     Dosage: NO THERAPY DETAILS WERE PROVIDED
     Route: 065
  2. CYCLOPHOSPHAMIDE. [Concomitant]
     Active Substance: CYCLOPHOSPHAMIDE
     Indication: BREAST CANCER
     Dosage: 4 CYCLES
     Route: 065
  3. HERCEPTIN [Suspect]
     Active Substance: TRASTUZUMAB
     Indication: HER-2 POSITIVE BREAST CANCER
     Route: 065
  4. PACLITAXEL. [Concomitant]
     Active Substance: PACLITAXEL
     Indication: CHEMOTHERAPY
     Dosage: NO THERAPY DETAILS WERE PROVIDED
     Route: 065
  5. RANITIDINE. [Concomitant]
     Active Substance: RANITIDINE
     Dosage: NO THERAPY DETAILS WERE PROVIDED
     Route: 065

REACTIONS (3)
  - Nausea [Recovered/Resolved]
  - Therapeutic response decreased [Unknown]
  - Vomiting [Recovered/Resolved]
